FAERS Safety Report 6743755-3 (Version None)
Quarter: 2010Q2

REPORT INFORMATION
  Report Type: 
  Country: None (occurrence: None)
  Receive Date: 20100527
  Receipt Date: 20100521
  Transmission Date: 20101027
  Serious: Yes (Life-Threatening, Hospitalization)
  Sender: FDA-Public Use
  Company Number: JP-ASTRAZENECA-2010SE08945

PATIENT
  Sex: Male

DRUGS (9)
  1. ECARD COMBINATION [Suspect]
     Indication: HYPERTENSION
     Dosage: 1 DF DAILY
     Route: 048
     Dates: start: 20090529, end: 20090731
  2. MENDON [Concomitant]
     Route: 048
  3. VASOLAN [Concomitant]
     Route: 065
  4. ASPIRIN [Concomitant]
     Route: 048
  5. SUNRYTHM [Concomitant]
     Route: 065
  6. GRAMALIL [Concomitant]
     Route: 048
  7. MYSLEE [Concomitant]
     Route: 048
  8. AMOXAN [Concomitant]
     Route: 048
  9. TAPIZOL [Concomitant]
     Route: 048

REACTIONS (1)
  - PLATELET COUNT DECREASED [None]
